FAERS Safety Report 6815825-2 (Version None)
Quarter: 2010Q3

REPORT INFORMATION
  Report Type: 
  Country: None (occurrence: None)
  Receive Date: 20100705
  Receipt Date: 20100625
  Transmission Date: 20110219
  Serious: Yes (Other)
  Sender: FDA-Public Use
  Company Number: US-BIOGENIDEC-2010BI019135

PATIENT
  Age: 55 Year
  Sex: Female

DRUGS (3)
  1. TYSABRI [Suspect]
     Indication: MULTIPLE SCLEROSIS
     Route: 042
     Dates: start: 20100309, end: 20100506
  2. TYSABRI [Suspect]
     Route: 042
     Dates: start: 20050724, end: 20050101
  3. TYSABRI [Suspect]
     Route: 042
     Dates: start: 20061102, end: 20070409

REACTIONS (4)
  - BLINDNESS [None]
  - FALL [None]
  - HALLUCINATION, VISUAL [None]
  - LUNG ADENOCARCINOMA [None]
